FAERS Safety Report 9338577 (Version 1)
Quarter: 2013Q2

REPORT INFORMATION
  Report Type: Spontaneous
  Country: AU (occurrence: AU)
  Receive Date: 20130610
  Receipt Date: 20130610
  Transmission Date: 20140414
  Serious: Yes (Hospitalization, Other)
  Sender: FDA-Public Use
  Company Number: AU-MERCK-1306AUS000382

PATIENT
  Sex: Male

DRUGS (19)
  1. EZETIMIBE [Suspect]
     Dosage: DOSE UNSPECIFIED
  2. CANDESARTAN CILEXETIL [Suspect]
     Dosage: DOSE UNSPEC
     Route: 048
  3. CARVEDILOL [Suspect]
     Dosage: DOSE UNSPEC
  4. CLOPIDOGREL [Suspect]
  5. CRESTOR [Suspect]
     Dosage: DOSE UNSPEC
     Route: 048
  6. DIGOXIN [Suspect]
     Dosage: DOSE UNSPEC
  7. FUROSEMIDE [Suspect]
     Dosage: DOSE UNSPEC
  8. GLICLAZIDE [Suspect]
     Dosage: DOSE UNSPEC
  9. HYDRALAZINE HYDROCHLORIDE [Suspect]
     Dosage: DOSE UNSPEC
  10. INSPRA [Suspect]
     Dosage: DOSE UNSPEC
  11. IVABRADINE [Suspect]
     Dosage: DOSE UNSPECIFIED
  12. LANTUS [Suspect]
     Dosage: DOSE UNSPEC
  13. METFORMIN HYDROCHLORIDE [Suspect]
     Dosage: DOSE UNSPEC
  14. NICORANDIL [Suspect]
     Dosage: DOSE UNSPEC
  15. NOVORAPID [Suspect]
     Dosage: DOSE UNSPEC
  16. PERHEXILINE MALEATE [Suspect]
     Dosage: DOSE UNSPEC
  17. PRAZOSIN HYDROCHLORIDE [Suspect]
     Dosage: DOSE UNSPEC
  18. SOTALOL HYDROCHLORIDE [Suspect]
     Dosage: DOSE UNSPEC
  19. QUINAPRIL HYDROCHLORIDE [Concomitant]
     Dosage: DOSE UNSPEC

REACTIONS (2)
  - Renal failure acute [Recovered/Resolved]
  - Hypotension [Recovered/Resolved]
